FAERS Safety Report 4371477-5 (Version None)
Quarter: 2004Q2

REPORT INFORMATION
  Report Type: 
  Country: None (occurrence: None)
  Receive Date: 20040607
  Receipt Date: 20040519
  Transmission Date: 20050107
  Serious: Yes (Other)
  Sender: FDA-Public Use
  Company Number: 200415554GDDC

PATIENT
  Age: 40 Year
  Sex: Male

DRUGS (7)
  1. ARAVA [Suspect]
     Indication: RHEUMATOID ARTHRITIS
     Route: 048
     Dates: start: 20040511
  2. GLUCOPHAGE [Suspect]
     Indication: DIABETES MELLITUS
     Dosage: DOSE: UNK
     Route: 048
  3. DIABETA [Suspect]
     Indication: DIABETES MELLITUS
     Route: 048
  4. MEDROL [Concomitant]
     Indication: ARTHRITIS
     Route: 048
     Dates: start: 20010101
  5. VITAMIN D [Concomitant]
     Dosage: DOSE: UNK
     Route: 048
  6. CALCIUM [Concomitant]
     Dosage: DOSE: UNK
     Route: 048
  7. NEURONTIN [Concomitant]
     Route: 048
     Dates: start: 20030729

REACTIONS (2)
  - DIABETES MELLITUS INADEQUATE CONTROL [None]
  - DRUG INTERACTION [None]
